FAERS Safety Report 16171923 (Version 1)
Quarter: 2019Q2

REPORT INFORMATION
  Report Type: Spontaneous
  Country: US (occurrence: US)
  Receive Date: 20190409
  Receipt Date: 20190409
  Transmission Date: 20190711
  Serious: No
  Sender: FDA-Public Use
  Company Number: US-TEVA-2019-US-1025684

PATIENT
  Sex: Male
  Weight: 86 kg

DRUGS (1)
  1. QVAR REDIHALER [Suspect]
     Active Substance: BECLOMETHASONE DIPROPIONATE
     Indication: ASTHMA
     Dosage: 2 PUFFS ONCE DAILY, STARTED 3 OR 4 MONTHS AGO
     Route: 065

REACTIONS (1)
  - Drug ineffective [Unknown]
